FAERS Safety Report 7786745-4 (Version None)
Quarter: 2011Q3

REPORT INFORMATION
  Report Type: 
  Country: None (occurrence: None)
  Receive Date: 20110929
  Receipt Date: 20110922
  Transmission Date: 20111222
  Serious: Yes (Hospitalization)
  Sender: FDA-Public Use
  Company Number: PHHY2011DK84501

PATIENT
  Sex: Female

DRUGS (4)
  1. BETA BLOCKING AGENTS [Concomitant]
     Dosage: UNK
  2. GLIMEPIRIDE [Suspect]
     Indication: TYPE 2 DIABETES MELLITUS
     Dosage: UNK
  3. GALVUS [Suspect]
     Indication: TYPE 2 DIABETES MELLITUS
     Dosage: 50 MG, BID
     Dates: start: 20101101
  4. METFORMIN HCL [Suspect]
     Dosage: UNK

REACTIONS (2)
  - TACHYCARDIA [None]
  - VENTRICULAR FIBRILLATION [None]
